FAERS Safety Report 6692462-4 (Version None)
Quarter: 2010Q2

REPORT INFORMATION
  Report Type: 
  Country: None (occurrence: None)
  Receive Date: 20100422
  Receipt Date: 20100420
  Transmission Date: 20101027
  Serious: Yes (Other)
  Sender: FDA-Public Use
  Company Number: A0824268A

PATIENT
  Age: 29 Year
  Sex: Male
  Weight: 90 kg

DRUGS (2)
  1. PAXIL CR [Suspect]
     Indication: INSOMNIA
     Dosage: 12.5U PER DAY
     Route: 048
     Dates: start: 20040301
  2. AMBIEN [Concomitant]
     Dosage: 5MG PER DAY
     Dates: start: 20040211

REACTIONS (3)
  - ADVERSE DRUG REACTION [None]
  - IMPRISONMENT [None]
  - SEXUAL ABUSE [None]
